FAERS Safety Report 14974216 (Version 4)
Quarter: 2018Q2

REPORT INFORMATION
  Report Type: Report from Study
  Country: US (occurrence: US)
  Receive Date: 20180605
  Receipt Date: 20180621
  Transmission Date: 20180711
  Serious: Yes (Death, Hospitalization, Other)
  Sender: FDA-Public Use
  Company Number: US-GILEAD-2018-0339956

PATIENT
  Age: 75 Year
  Sex: Male

DRUGS (3)
  1. AMBRISENTAN [Suspect]
     Active Substance: AMBRISENTAN
     Indication: PULMONARY ARTERIAL HYPERTENSION
     Dosage: 10 MG, UNK
     Route: 065
     Dates: start: 20171027
  2. REMODULIN [Concomitant]
     Active Substance: TREPROSTINIL
     Dosage: 100 MG, UNK
     Route: 058
  3. SILDENAFIL. [Concomitant]
     Active Substance: SILDENAFIL
     Dosage: 20 MG, UNK
     Route: 048

REACTIONS (7)
  - Urine output decreased [Fatal]
  - Blood pressure decreased [Fatal]
  - Cardiac failure [Unknown]
  - Dyspnoea [Fatal]
  - Pulmonary hypertension [Unknown]
  - Dehydration [Fatal]
  - Oedema [Unknown]
